FAERS Safety Report 15146833 (Version 2)
Quarter: 2018Q3

REPORT INFORMATION
  Report Type: Spontaneous
  Country: US (occurrence: US)
  Receive Date: 20180716
  Receipt Date: 20180719
  Transmission Date: 20181010
  Serious: Yes (Other)
  Sender: FDA-Public Use
  Company Number: US-BEH-2018092692

PATIENT
  Age: 78 Year
  Sex: Female

DRUGS (15)
  1. VITAMIN B12 [Concomitant]
     Active Substance: CYANOCOBALAMIN
  2. ZOLOFT [Concomitant]
     Active Substance: SERTRALINE HYDROCHLORIDE
  3. ULTRAM [Concomitant]
     Active Substance: TRAMADOL HYDROCHLORIDE
  4. COENZYME Q10 [Concomitant]
     Active Substance: UBIDECARENONE
  5. VITAMIN D                          /00107901/ [Concomitant]
     Active Substance: ERGOCALCIFEROL
  6. PRIVIGEN [Suspect]
     Active Substance: HUMAN IMMUNOGLOBULIN G
     Indication: PRODUCT USED FOR UNKNOWN INDICATION
     Dosage: 45 G, EVERY 28 DAYS
     Route: 042
     Dates: start: 2014
  7. PROBIOTIC                          /06395501/ [Concomitant]
     Active Substance: BIFIDOBACTERIUM ANIMALIS LACTIS
  8. MAGNESIUM [Concomitant]
     Active Substance: MAGNESIUM
  9. ATIVAN [Concomitant]
     Active Substance: LORAZEPAM
     Dosage: 1 MG, UNK
     Route: 065
  10. BYSTOLIC [Concomitant]
     Active Substance: NEBIVOLOL HYDROCHLORIDE
  11. CRANBERRY                          /01512301/ [Concomitant]
     Active Substance: CRANBERRY
  12. FLONASE [Concomitant]
     Active Substance: FLUTICASONE PROPIONATE
  13. ZYRTEC [Concomitant]
     Active Substance: CETIRIZINE HYDROCHLORIDE
  14. AZELASTINE. [Concomitant]
     Active Substance: AZELASTINE HYDROCHLORIDE
     Dosage: 137 ?G, UNK
     Route: 045
  15. ASPIRIN. [Concomitant]
     Active Substance: ASPIRIN

REACTIONS (5)
  - Gastrointestinal arteriovenous malformation [Recovering/Resolving]
  - Anaemia [Recovering/Resolving]
  - Syncope [Recovering/Resolving]
  - Haematochezia [Recovering/Resolving]
  - Dizziness [Recovering/Resolving]

NARRATIVE: CASE EVENT DATE: 201806
